FAERS Safety Report 9622449 (Version 1)
Quarter: 2013Q4

REPORT INFORMATION
  Report Type: Spontaneous
  Country: PR (occurrence: None)
  Receive Date: 20131010
  Receipt Date: 20131010
  Transmission Date: 20140711
  Serious: Yes (Other)
  Sender: FDA-Public Use
  Company Number: 001604920A

PATIENT
  Age: 55 Year
  Sex: Female

DRUGS (3)
  1. PROACTIVE RENEWING CLEANSER [Suspect]
     Indication: ACNE
     Dosage: TWICE DAILY DERMAL
     Dates: start: 20130831, end: 20130901
  2. PROACTIVE REPAIRING TREATMENT [Suspect]
     Indication: ACNE
     Dosage: TWICE DAILY DERMAL
     Dates: start: 20130831, end: 20130901
  3. PROACTIVE BLACKHEAD DISSOLVING GEL [Suspect]
     Indication: ACNE
     Dosage: TWICE DAILY DERMAL
     Dates: start: 20130831, end: 20130901

REACTIONS (3)
  - Pruritus [None]
  - Erythema [None]
  - Swelling face [None]
